FAERS Safety Report 10827735 (Version 1)
Quarter: 2015Q1

REPORT INFORMATION
  Report Type: Report from Study
  Country: US (occurrence: US)
  Receive Date: 20150219
  Receipt Date: 20150219
  Transmission Date: 20150721
  Serious: No
  Sender: FDA-Public Use
  Company Number: US-ABBVIE-14K-163-1327359-00

PATIENT
  Age: 20 Year
  Sex: Male

DRUGS (2)
  1. AMOXICILLIN. [Suspect]
     Active Substance: AMOXICILLIN
     Indication: STREPTOCOCCAL INFECTION
     Route: 065
  2. HUMIRA [Suspect]
     Active Substance: ADALIMUMAB
     Indication: PSORIASIS
     Route: 065

REACTIONS (4)
  - Drug hypersensitivity [Unknown]
  - Psoriasis [Unknown]
  - Guttate psoriasis [Unknown]
  - Streptococcal infection [Unknown]
